FAERS Safety Report 11772804 (Version 1)
Quarter: 2015Q4

REPORT INFORMATION
  Report Type: Spontaneous
  Country: US (occurrence: None)
  Receive Date: 20151123
  Receipt Date: 20151123
  Transmission Date: 20160304
  Serious: Yes (Death, Life-Threatening, Hospitalization, Disabling, Other)
  Sender: FDA-Public Use
  Company Number: None

PATIENT
  Age: 89 Year
  Sex: Female
  Weight: 65 kg

DRUGS (6)
  1. QUETIAPINE FUMARATE. [Concomitant]
     Active Substance: QUETIAPINE FUMARATE
  2. VALPROIC ACID. [Concomitant]
     Active Substance: VALPROIC ACID
  3. SENNA LAXATIVE [Concomitant]
     Active Substance: SENNOSIDES A AND B
  4. LACTULOSE. [Concomitant]
     Active Substance: LACTULOSE
  5. HALOPERIDOL. [Suspect]
     Active Substance: HALOPERIDOL
     Indication: AGITATION
     Route: 048
     Dates: start: 20140730, end: 20150630
  6. MIRALAX [Concomitant]
     Active Substance: POLYETHYLENE GLYCOL 3350

REACTIONS (3)
  - Colonic pseudo-obstruction [None]
  - Megacolon [None]
  - Septic shock [None]

NARRATIVE: CASE EVENT DATE: 20151003
